FAERS Safety Report 6401079-8 (Version None)
Quarter: 2009Q4

REPORT INFORMATION
  Report Type: 
  Country: None (occurrence: None)
  Receive Date: 20091015
  Receipt Date: 20070308
  Transmission Date: 20100525
  Serious: Yes (Disabling)
  Sender: FDA-Public Use
  Company Number: US-ASTRAZENECA-2006UW08304

PATIENT
  Sex: Male
  Weight: 103.9 kg

DRUGS (5)
  1. SEROQUEL [Suspect]
     Indication: MENTAL DISORDER
     Dosage: 200-1000MG
     Route: 048
     Dates: start: 20021204
  2. GABAPENTIN [Concomitant]
     Dosage: 300-600MG
     Route: 048
     Dates: start: 20050314
  3. ATENOLOL [Concomitant]
     Indication: BLOOD PRESSURE
     Dosage: 50-100MG
     Route: 048
     Dates: start: 20030224
  4. HYDROCHLOROTHIAZIDE [Concomitant]
     Route: 048
     Dates: start: 20040323
  5. METFORMIN HYDROCHLORIDE [Concomitant]
     Indication: DIABETES MELLITUS
     Dosage: 500-2000MG
     Route: 048
     Dates: start: 20051003

REACTIONS (1)
  - ILL-DEFINED DISORDER [None]
